FAERS Safety Report 7321121-X (Version None)
Quarter: 2011Q1

REPORT INFORMATION
  Report Type: 
  Country: None (occurrence: None)
  Receive Date: 20110228
  Receipt Date: 20110218
  Transmission Date: 20110831
  Serious: Yes (Hospitalization)
  Sender: FDA-Public Use
  Company Number: US-ASTRAZENECA-2011SE09439

PATIENT
  Age: 35 Year
  Sex: Female
  Weight: 63.5 kg

DRUGS (3)
  1. VITAMINES [Concomitant]
  2. NEXIUM [Suspect]
     Indication: ABDOMINAL DISCOMFORT
     Route: 048
     Dates: start: 20080101, end: 20100401
  3. CARAFATE [Concomitant]

REACTIONS (5)
  - GASTRIC ULCER [None]
  - GASTRIC BYPASS [None]
  - DRUG EXPOSURE DURING PREGNANCY [None]
  - DRUG DOSE OMISSION [None]
  - GASTRIC ULCER PERFORATION [None]
